FAERS Safety Report 17098303 (Version 1)
Quarter: 2019Q4

REPORT INFORMATION
  Report Type: Spontaneous
  Country: US (occurrence: US)
  Receive Date: 20191202
  Receipt Date: 20191202
  Transmission Date: 20200122
  Serious: Yes (Hospitalization)
  Sender: FDA-Public Use
  Company Number: US-MYLANLABS-2019M1117051

PATIENT
  Age: 58 Year
  Sex: Male

DRUGS (20)
  1. LORAZEPAM. [Suspect]
     Active Substance: LORAZEPAM
     Indication: ANXIETY
     Dosage: EVERY 12 HR
     Route: 048
  2. DEXMEDETOMIDINE. [Concomitant]
     Active Substance: DEXMEDETOMIDINE
     Indication: PRODUCT USED FOR UNKNOWN INDICATION
     Dosage: 0.2 MICROGRAM/KILOGRAM, QH
     Route: 065
  3. MORPHINE [Interacting]
     Active Substance: MORPHINE
     Indication: PAIN
     Dosage: BASAL RATE OF 25 MG/H...
     Route: 065
  4. DEXAMETHASONE. [Concomitant]
     Active Substance: DEXAMETHASONE
     Indication: PRODUCT USED FOR UNKNOWN INDICATION
     Dosage: 4 MILLIGRAM, QD
     Route: 042
  5. METHADONE [Concomitant]
     Active Substance: METHADONE HYDROCHLORIDE
     Dosage: DOSE INCREASED
     Route: 042
  6. METHADONE [Concomitant]
     Active Substance: METHADONE HYDROCHLORIDE
     Dosage: THERAPY CONTINUED...
     Route: 042
  7. HYDROMORPHONE [Interacting]
     Active Substance: HYDROMORPHONE
     Indication: PAIN
     Dosage: PATIENT-CONTROLLED ANALGESIC PUMP
     Route: 042
  8. HYDROMORPHONE [Interacting]
     Active Substance: HYDROMORPHONE
     Dosage: PCA SETTINGS WERE INCREASED..
     Route: 042
  9. OXYCODONE [Concomitant]
     Active Substance: OXYCODONE
     Indication: PAIN
     Dosage: 10 MG BY MOUTH..
     Route: 048
  10. OCTREOTIDE. [Concomitant]
     Active Substance: OCTREOTIDE
     Indication: PRODUCT USED FOR UNKNOWN INDICATION
     Dosage: 50 MICROGRAM, Q8H
     Route: 042
  11. FENTANYL. [Suspect]
     Active Substance: FENTANYL
     Indication: PAIN
     Dosage: 100 MICROGRAM, QH
     Route: 062
  12. HYDROMORPHONE [Interacting]
     Active Substance: HYDROMORPHONE
     Dosage: AT 2 MG/H BASAL RATE....
     Route: 042
  13. TRAZODONE [Concomitant]
     Active Substance: TRAZODONE HYDROCHLORIDE
     Indication: SLEEP DISORDER
     Dosage: 50 MILLIGRAM, QD
     Route: 048
  14. FENTANYL. [Suspect]
     Active Substance: FENTANYL
     Dosage: 150 MICROGRAM, QH
     Route: 062
  15. FENTANYL. [Suspect]
     Active Substance: FENTANYL
     Dosage: 200 MICROGRAM, QH
     Route: 062
  16. OXYCODONE [Concomitant]
     Active Substance: OXYCODONE
     Dosage: EVERY 8 HOURS
     Route: 048
  17. HALOPERIDOL. [Concomitant]
     Active Substance: HALOPERIDOL
     Indication: PRODUCT USED FOR UNKNOWN INDICATION
     Dosage: 0.5 MILLIGRAM, Q8H
     Route: 042
  18. HYDROMORPHONE [Interacting]
     Active Substance: HYDROMORPHONE
     Dosage: PCA SETTING WAS INCREASED..
     Route: 042
  19. NORTRIPTYLINE [Concomitant]
     Active Substance: NORTRIPTYLINE
     Indication: PAIN
     Dosage: EVERY MORNING
     Route: 048
  20. METHADONE [Concomitant]
     Active Substance: METHADONE HYDROCHLORIDE
     Indication: PAIN
     Dosage: 10 MILLIGRAM, Q8H
     Route: 042

REACTIONS (6)
  - Tachyphylaxis [Unknown]
  - Confusional state [Unknown]
  - Delirium [Unknown]
  - Condition aggravated [Unknown]
  - Myoclonus [Unknown]
  - Drug interaction [Unknown]
